FAERS Safety Report 4585613-9 (Version None)
Quarter: 2005Q1

REPORT INFORMATION
  Report Type: 
  Country: None (occurrence: None)
  Receive Date: 20050214
  Receipt Date: 20050203
  Transmission Date: 20050727
  Serious: Yes (Hospitalization, Other)
  Sender: FDA-Public Use
  Company Number: 2004118199

PATIENT
  Age: 54 Year
  Sex: Female
  Weight: 51 kg

DRUGS (10)
  1. EPIRUBICIN [Suspect]
     Indication: BREAST CANCER
     Dosage: INTRAVENOUS
     Route: 042
     Dates: start: 20041014, end: 20041124
  2. EPIRUBICIN [Suspect]
     Indication: BREAST CANCER
     Dosage: INTRAVENOUS
     Route: 042
     Dates: start: 20041207, end: 20041214
  3. CYCLOPHOSPHAMIDE [Suspect]
     Indication: BREAST CANCER
     Dosage: 894 MG (894 MG, CYCLIC), INTRAVENOUS
     Route: 042
     Dates: start: 20041014, end: 20041124
  4. DEXAMETHASONE [Concomitant]
  5. GRANISETRON (GRANISETRON) [Concomitant]
  6. LAFUTIDINE (LAFUTIDINE) [Concomitant]
  7. LORAZEPAM [Concomitant]
  8. PROCHLORPERAZINE [Concomitant]
  9. MAGNESIUM OXIDE (MAGNESIUM OXIDE) [Concomitant]
  10. SENNA LEAF (SENNA LEAF) [Concomitant]

REACTIONS (3)
  - BLOOD BETA-D-GLUCAN INCREASED [None]
  - INFECTION [None]
  - INTERSTITIAL LUNG DISEASE [None]
